FAERS Safety Report 5134593-6 (Version None)
Quarter: 2006Q4

REPORT INFORMATION
  Report Type: 
  Country: None (occurrence: None)
  Receive Date: 20061025
  Receipt Date: 20060829
  Transmission Date: 20070319
  Serious: Yes (Hospitalization)
  Sender: FDA-Public Use
  Company Number: US-GLAXOSMITHKLINE-A0618486A

PATIENT
  Age: 56 Year
  Sex: Male
  Weight: 60.9 kg

DRUGS (10)
  1. COREG [Suspect]
     Indication: HYPERTENSION
     Dosage: 12.5MG TWICE PER DAY
     Route: 048
  2. ENALAPRIL MALEATE [Concomitant]
  3. SYNTHROID [Concomitant]
  4. NPH INSULIN [Concomitant]
  5. METOPROLOL [Concomitant]
  6. SIMVASTATIN [Concomitant]
  7. ASPIRIN [Concomitant]
     Dosage: 81MG ALTERNATE DAYS
  8. VITAMINS [Concomitant]
  9. ATIVAN [Concomitant]
     Dosage: .5MG AS REQUIRED
  10. ZOCOR [Concomitant]
     Dosage: 40MG PER DAY
     Route: 048
     Dates: start: 20060306

REACTIONS (3)
  - CARDIAC FAILURE CONGESTIVE [None]
  - DYSPNOEA [None]
  - OEDEMA PERIPHERAL [None]
